FAERS Safety Report 18806769 (Version 1)
Quarter: 2021Q1

REPORT INFORMATION
  Report Type: Spontaneous
  Country: US (occurrence: US)
  Receive Date: 20210128
  Receipt Date: 20210128
  Transmission Date: 20210419
  Serious: Yes (Death, Hospitalization, Other)
  Sender: FDA-Public Use
  Company Number: US-ABBVIE-21K-163-3749845-00

PATIENT
  Age: 93 Year
  Sex: Male

DRUGS (1)
  1. IMBRUVICA [Suspect]
     Active Substance: IBRUTINIB
     Indication: CHRONIC LYMPHOCYTIC LEUKAEMIA
     Route: 048

REACTIONS (7)
  - Pneumonia [Fatal]
  - Malaise [Unknown]
  - Asthenia [Unknown]
  - Tremor [Unknown]
  - Cardiac arrest [Fatal]
  - Speech disorder [Unknown]
  - Respiratory arrest [Fatal]

NARRATIVE: CASE EVENT DATE: 2020
